FAERS Safety Report 8924007 (Version 2)
Quarter: 2012Q4

REPORT INFORMATION
  Report Type: 
  Country: FR (occurrence: FR)
  Receive Date: 20121127
  Receipt Date: 20121204
  Transmission Date: 20130627
  Serious: Yes (Hospitalization)
  Sender: FDA-Public Use
  Company Number: FR-ACCORD-015389

PATIENT
  Age: 48 Year
  Sex: Female

DRUGS (9)
  1. UROMITEXAN [Suspect]
     Indication: SECONDARY PREVENTION
     Dosage: UROMITEXAN 1 g/10 ml, solution for injection for infusion in vial
3000 mg for each course
     Route: 042
     Dates: start: 20120823, end: 20120824
  2. NEURONTIN [Concomitant]
     Indication: NEUROGENIC PAIN
     Dosage: NEURONTIN 100 mg, capsule
     Route: 048
  3. GEMCITABINE [Suspect]
     Indication: NON-HODGKIN^S LYMPHOMA UNSPECIFIED HISTOLOGY AGGRESSIVE REFRACTORY
     Dosage: GEMCITABINE ACCORD 1000 mg powder for solution for infusion.
     Route: 042
     Dates: start: 20120823
  4. SOLUMEDROL(METHYLPREDNISOLONE SODIUM SUCCINATE) INFUSION [Suspect]
     Indication: NON-HODGKIN^S LYMPHOMA UNSPECIFIED HISTOLOGY AGGRESSIVE REFRACTORY
     Dosage: SOLUMEDROL lyophilizate and solution for parenteral use, Slow intravenous injection
     Route: 042
     Dates: start: 20120823, end: 20120824
  5. MORPHINE HYDROCHLORIDE [Concomitant]
     Indication: CANCER PAIN
     Route: 042
  6. VINORELBINE [Suspect]
     Indication: NON-HODGKIN^S LYMPHOMA UNSPECIFIED HISTOLOGY AGGRESSIVE REFRACTORY
     Dosage: VINORELBINE SANDOZ I0 mg/ml, concentrate for solution for infusion, direct intravenous route
     Route: 042
     Dates: start: 20120823
  7. ZOPHREN [Suspect]
     Indication: DRUG USE FOR UNKNOWN INDICATION
     Dosage: ZOPHREN 8mg/4ml, solution for injection in prefilled syringe via
intravenous perfusion
     Route: 042
     Dates: start: 20120823, end: 20120828
  8. PRIMPERAN [Suspect]
     Indication: SECONDARY PREVENTION
     Dosage: PRIMPERAN 100 mg, solution for injection
     Route: 042
     Dates: start: 20120823, end: 20120824
  9. HOLOXAN [Suspect]
     Indication: NON-HODGKIN^S LYMPHOMA UNSPECIFIED HISTOLOGY AGGRESSIVE REFRACTORY
     Dosage: HOLOXAN 1000 mg, powder for injectable solution, 3000 mg for each cource in 2 hours
     Route: 042
     Dates: start: 20120823, end: 20120824

REACTIONS (2)
  - Encephalopathy [Recovered/Resolved with Sequelae]
  - Off label use [Unknown]
